FAERS Safety Report 8444988 (Version 6)
Quarter: 2013Q1

REPORT INFORMATION
  Report Type: Spontaneous
  Country: US (occurrence: US)
  Receive Date: 20120126
  Receipt Date: 20130314
  Transmission Date: 20140127
  Serious: Yes (Other)
  Sender: FDA-Public Use
  Company Number: PHHY2011US19594

PATIENT
  Age: 11 Year
  Sex: Male
  Weight: 53.52 kg

DRUGS (9)
  1. AFINITOR [Suspect]
     Dosage: 7.5 MG, QD
     Route: 048
     Dates: start: 20100714
  2. AFINITOR [Suspect]
     Dosage: 10 MG, UNK
     Route: 048
  3. SABRIL [Concomitant]
  4. TAURINE [Concomitant]
  5. VIMPAT [Concomitant]
  6. ONFI [Concomitant]
     Dosage: 50 MG, QD
  7. METFORMIN 2 [Concomitant]
     Dosage: 500 MG, DAILY
  8. ABILIFY [Concomitant]
     Dosage: 20 MG, QPM
  9. GUAIFENESIN [Concomitant]
     Dosage: 1 MG, BID

REACTIONS (9)
  - Grand mal convulsion [Not Recovered/Not Resolved]
  - Respiratory arrest [Unknown]
  - Postictal paralysis [Not Recovered/Not Resolved]
  - Conjunctivitis infective [Not Recovered/Not Resolved]
  - Pneumonia [Recovered/Resolved]
  - Rhinorrhoea [Recovered/Resolved]
  - Pyrexia [Recovered/Resolved]
  - Sinusitis [Not Recovered/Not Resolved]
  - Hypopnoea [Not Recovered/Not Resolved]
